FAERS Safety Report 6419686-5 (Version None)
Quarter: 2009Q4

REPORT INFORMATION
  Report Type: 
  Country: None (occurrence: None)
  Receive Date: 20091029
  Receipt Date: 20091021
  Transmission Date: 20100525
  Serious: Yes (Hospitalization)
  Sender: FDA-Public Use
  Company Number: B0593403A

PATIENT
  Sex: Male

DRUGS (7)
  1. LANOXIN [Suspect]
     Indication: ATRIAL FIBRILLATION
     Dosage: 1TAB PER DAY
     Route: 048
     Dates: start: 20090601, end: 20090825
  2. BISOPROLOL [Suspect]
     Dosage: 1TAB PER DAY
     Route: 048
     Dates: start: 20090601, end: 20090825
  3. COUMADIN [Concomitant]
     Indication: PROPHYLAXIS
     Route: 048
     Dates: start: 20070101, end: 20090825
  4. CORDARONE [Concomitant]
     Indication: ATRIAL FIBRILLATION
     Dosage: 200MG UNKNOWN
     Route: 048
     Dates: start: 20090717, end: 20090825
  5. TAREG [Concomitant]
     Route: 048
     Dates: start: 20090717, end: 20090825
  6. EUTIROX [Concomitant]
     Indication: HYPOTHYROIDISM
     Route: 048
     Dates: start: 20080101, end: 20090825
  7. LASIX [Concomitant]
     Route: 048
     Dates: start: 20070101, end: 20090825

REACTIONS (3)
  - CARDIAC FAILURE [None]
  - ELECTROCARDIOGRAM QT PROLONGED [None]
  - SINUS BRADYCARDIA [None]
